FAERS Safety Report 8057975-1 (Version None)
Quarter: 2012Q1

REPORT INFORMATION
  Report Type: 
  Country: None (occurrence: None)
  Receive Date: 20120120
  Receipt Date: 20120111
  Transmission Date: 20120608
  Serious: Yes (Other)
  Sender: FDA-Public Use
  Company Number: US-PFIZER INC-2011283336

PATIENT
  Sex: Female
  Weight: 74.83 kg

DRUGS (4)
  1. HYDROCODONE BITARTRATE [Suspect]
  2. EFFEXOR XR [Concomitant]
     Indication: DEPRESSION
     Dosage: 150 MG, DAILY
  3. CELEBREX [Suspect]
     Indication: RHEUMATOID ARTHRITIS
     Dosage: 200 MG, 1X/DAY
  4. LYRICA [Concomitant]
     Indication: FIBROMYALGIA
     Dosage: 100 MG, 2X/DAY

REACTIONS (5)
  - GASTRIC HAEMORRHAGE [None]
  - ABDOMINAL DISTENSION [None]
  - FLATULENCE [None]
  - EPISTAXIS [None]
  - DIARRHOEA [None]
